FAERS Safety Report 12780133 (Version 1)
Quarter: 2016Q3

REPORT INFORMATION
  Report Type: Spontaneous
  Country: US (occurrence: US)
  Receive Date: 20160925
  Receipt Date: 20160925
  Transmission Date: 20161109
  Serious: Yes (Disabling)
  Sender: FDA-Public Use
  Company Number: None

PATIENT
  Age: 15 Year
  Sex: Male
  Weight: 52.2 kg

DRUGS (1)
  1. ONEXTON [Suspect]
     Active Substance: BENZOYL PEROXIDE\CLINDAMYCIN PHOSPHATE
     Indication: ACNE
     Dosage: OTHER STRENGTH:;OTHER DOSE:GRAM;OTHER FREQUENCY:;OTHER ROUTE:
     Route: 061
     Dates: start: 20160811, end: 20160831

REACTIONS (3)
  - Oropharyngeal blistering [None]
  - Oropharyngeal pain [None]
  - Tongue blistering [None]

NARRATIVE: CASE EVENT DATE: 20160831
